FAERS Safety Report 15037196 (Version 1)
Quarter: 2018Q2

REPORT INFORMATION
  Report Type: Spontaneous
  Country: US (occurrence: US)
  Receive Date: 20180620
  Receipt Date: 20180620
  Transmission Date: 20180711
  Serious: Yes (Other)
  Sender: FDA-Public Use
  Company Number: US-MYLANLABS-2018M1042241

PATIENT
  Age: 55 Year
  Sex: Female

DRUGS (2)
  1. PHENYTOIN. [Suspect]
     Active Substance: PHENYTOIN
     Indication: EPILEPSY
     Route: 065
  2. ATRIPLA [Suspect]
     Active Substance: EFAVIRENZ\EMTRICITABINE\TENOFOVIR DISOPROXIL FUMARATE
     Indication: HIV INFECTION
     Route: 065

REACTIONS (8)
  - Hand fracture [Recovering/Resolving]
  - Joint swelling [Unknown]
  - Nystagmus [Unknown]
  - Ulna fracture [Unknown]
  - Ataxia [Recovered/Resolved]
  - Toxicity to various agents [Unknown]
  - Fanconi syndrome acquired [Recovered/Resolved]
  - Osteopenia [Unknown]
